FAERS Safety Report 4303746-9 (Version None)
Quarter: 2004Q1

REPORT INFORMATION
  Report Type: 
  Country: None (occurrence: None)
  Receive Date: 20040225
  Receipt Date: 20040117
  Transmission Date: 20041129
  Serious: Yes (Other)
  Sender: FDA-Public Use
  Company Number: PHFR2004GB00626

PATIENT
  Age: 27 Year
  Sex: Female

DRUGS (1)
  1. CLOZARIL [Suspect]
     Indication: SCHIZOPHRENIA
     Route: 048
     Dates: start: 20030430

REACTIONS (4)
  - CHEST PAIN [None]
  - COSTOCHONDRITIS [None]
  - SEDATION [None]
  - TACHYCARDIA [None]
